FAERS Safety Report 14891391 (Version 1)
Quarter: 2018Q2

REPORT INFORMATION
  Report Type: Spontaneous
  Country: US (occurrence: US)
  Receive Date: 20180514
  Receipt Date: 20180514
  Transmission Date: 20180711
  Serious: No
  Sender: FDA-Public Use
  Company Number: US-UNITED THERAPEUTICS-UNT-2017-017346

PATIENT
  Age: 52 Year
  Sex: Female

DRUGS (3)
  1. TYVASO [Suspect]
     Active Substance: TREPROSTINIL
     Indication: PULMONARY ARTERIAL HYPERTENSION
     Dosage: 42 ?G, QID
     Dates: start: 20171117
  2. ADCIRCA [Concomitant]
     Active Substance: TADALAFIL
     Indication: PRODUCT USED FOR UNKNOWN INDICATION
     Dosage: UNK
     Route: 065
     Dates: start: 20171007
  3. AMBRISENTAN [Suspect]
     Active Substance: AMBRISENTAN
     Indication: PULMONARY HYPERTENSION
     Dosage: 10 MG, QD
     Route: 065
     Dates: start: 2014

REACTIONS (9)
  - Dizziness [Recovering/Resolving]
  - Nausea [Unknown]
  - Cough [Recovering/Resolving]
  - Dysphonia [Not Recovered/Not Resolved]
  - Throat irritation [Unknown]
  - Gingival bleeding [Unknown]
  - Chest pain [Recovering/Resolving]
  - Oxygen saturation decreased [Recovering/Resolving]
  - Ear pain [Not Recovered/Not Resolved]

NARRATIVE: CASE EVENT DATE: 2017
